FAERS Safety Report 8694170 (Version 3)
Quarter: 2012Q4

REPORT INFORMATION
  Report Type: 
  Country: FR (occurrence: FR)
  Receive Date: 20120731
  Receipt Date: 20121101
  Transmission Date: 20130627
  Serious: Yes (Hospitalization)
  Sender: FDA-Public Use
  Company Number: FR-NAPPMUNDI-GBR-2012-0011050

PATIENT
  Age: 63 Year
  Sex: Male

DRUGS (11)
  1. OXYCONTIN LP, COMPRIME PELLICULE A LIBERATION PROLONGEE [Suspect]
     Indication: PAIN
     Dosage: 90 mg, daily
     Route: 048
  2. OXYNORM [Suspect]
     Indication: CANCER PAIN
     Dosage: 5 mg, prn
     Route: 048
  3. ALIMTA [Suspect]
     Indication: LUNG NEOPLASM MALIGNANT
     Dosage: 900 mg, daily
     Route: 042
     Dates: start: 20120305, end: 20120515
  4. CISPLATINE [Suspect]
     Dosage: 140 mg, UNK
     Route: 042
     Dates: start: 20120305, end: 20120515
  5. ZOMETA [Suspect]
     Dosage: UNK
     Route: 042
     Dates: start: 20120515, end: 20120515
  6. LYRICA [Suspect]
     Dosage: 100 mg, bid
     Route: 065
  7. EMEND                              /01627301/ [Suspect]
     Dosage: 125 mg, UNK
     Route: 048
     Dates: start: 20120303, end: 20120315
  8. ONDANSETRON [Suspect]
     Dosage: 8 mg per cycle
     Route: 042
     Dates: start: 20120303, end: 20120315
  9. METHYLPREDNISOLONE [Suspect]
     Dosage: 120 mg per cycle
     Route: 042
     Dates: start: 20120305, end: 20120315
  10. DEXAMETHASONE [Suspect]
     Dosage: 4 mg, bid
     Route: 048
     Dates: start: 20120304, end: 20120516
  11. SPECIAFOLDINE [Suspect]
     Dosage: 0.4 mg, daily
     Route: 048
     Dates: start: 201203

REACTIONS (2)
  - Haemolytic anaemia [Not Recovered/Not Resolved]
  - Dyspnoea [Not Recovered/Not Resolved]
